FAERS Safety Report 10768981 (Version 3)
Quarter: 2015Q3

REPORT INFORMATION
  Report Type: Spontaneous
  Country: NO (occurrence: None)
  Receive Date: 20150204
  Receipt Date: 20150710
  Transmission Date: 20151125
  Serious: Yes (Hospitalization)
  Sender: FDA-Public Use
  Company Number: NO-2015VAL000105

PATIENT
  Age: 69 Year
  Sex: Male
  Weight: 83.6 kg

DRUGS (7)
  1. COZAAR [Concomitant]
     Active Substance: LOSARTAN POTASSIUM
  2. LIPITOR [Concomitant]
     Active Substance: ATORVASTATIN CALCIUM
  3. SELOZOK (METOPROLOL SUCCINATE) [Concomitant]
  4. CANAKINUMAB [Suspect]
     Active Substance: CANAKINUMAB
     Indication: CARDIOVASCULAR EVENT PROPHYLAXIS
     Dosage: CODE NOT BROKEN, SUBCUTANEOUS
     Route: 058
     Dates: start: 20131126
  5. EZETROL (EZETIMIBE) [Concomitant]
     Active Substance: EZETIMIBE
  6. METOPROLOL TARTRATE (METOPROLOL TARTRATE) UNKNOWN [Suspect]
     Active Substance: METOPROLOL TARTRATE
     Indication: CORONARY ARTERY DISEASE
  7. ALBYL-E (ACETYLSALICYLIC ACID, MAGNESIUM OXIDE) [Concomitant]

REACTIONS (2)
  - Pulmonary congestion [None]
  - Sinus node dysfunction [None]

NARRATIVE: CASE EVENT DATE: 20140913
